FAERS Safety Report 17426468 (Version 1)
Quarter: 2020Q1

REPORT INFORMATION
  Report Type: Spontaneous
  Country: FR (occurrence: FR)
  Receive Date: 20200218
  Receipt Date: 20200218
  Transmission Date: 20200409
  Serious: Yes (Hospitalization)
  Sender: FDA-Public Use
  Company Number: FR-TEVA-2020-FR-1186812

PATIENT
  Age: 82 Year
  Sex: Female
  Weight: 80 kg

DRUGS (5)
  1. VOLTARENE (DICLOFENAC SODIUM) [Interacting]
     Active Substance: DICLOFENAC SODIUM
     Indication: ARTHRALGIA
     Dosage: CF COMMENTS
     Route: 048
     Dates: end: 20200115
  2. LASILIX [Interacting]
     Active Substance: FUROSEMIDE
     Indication: HYPERNATRAEMIA
     Route: 041
     Dates: start: 20200116, end: 20200117
  3. XENETIX 300 (300 MG DIODE/ML), SOLUTION INJECTABLE [Interacting]
     Active Substance: IOBITRIDOL
     Indication: ANGIOCARDIOGRAM
     Dosage: 120ML
     Route: 013
     Dates: start: 20200115, end: 20200115
  4. VALSARTAN ARROW 40 MG, COMPRIME PELLICULE SECABLE [Suspect]
     Active Substance: VALSARTAN
     Indication: CORONARY ARTERY DISEASE
     Dosage: 40MG
     Route: 048
     Dates: start: 20200116, end: 20200117
  5. SPIRONOLACTONE ARROW 25 MG, COMPRIME PELLICULE SECABLE [Interacting]
     Active Substance: SPIRONOLACTONE
     Indication: CORONARY ARTERY DISEASE
     Dosage: 25MG
     Route: 048
     Dates: start: 20200116, end: 20200121

REACTIONS (2)
  - Acute kidney injury [Not Recovered/Not Resolved]
  - Drug interaction [Unknown]

NARRATIVE: CASE EVENT DATE: 20200118
